FAERS Safety Report 23479301 (Version 1)
Quarter: 2024Q1

REPORT INFORMATION
  Report Type: Spontaneous
  Country: CA (occurrence: CA)
  Receive Date: 20240205
  Receipt Date: 20240205
  Transmission Date: 20240410
  Serious: Yes (Death, Hospitalization, Other)
  Sender: FDA-Public Use
  Company Number: CA-AMGEN-CANSP2024020189

PATIENT
  Sex: Male

DRUGS (5)
  1. RITUXIMAB [Suspect]
     Active Substance: RITUXIMAB
     Indication: Epstein-Barr virus associated lymphoproliferative disorder
     Dosage: UNK (12 DOSES OVERALL)
     Route: 065
     Dates: start: 202104
  2. BLEOMYCIN\DACARBAZINE\DOXORUBICIN\VINBLASTINE [Concomitant]
     Active Substance: BLEOMYCIN\DACARBAZINE\DOXORUBICIN\VINBLASTINE
     Indication: Hodgkin^s disease
     Dosage: UNK
     Route: 065
     Dates: start: 2019
  3. CISPLATIN;DEXAMETHASONE;GEMCITABINE [Concomitant]
     Indication: Hodgkin^s disease
     Dosage: UNK
     Route: 065
     Dates: start: 2019
  4. BRENTUXIMAB [Concomitant]
     Active Substance: BRENTUXIMAB
     Dosage: UNK
     Route: 065
  5. PREDNISONE [Concomitant]
     Active Substance: PREDNISONE
     Indication: Graft versus host disease
     Dosage: UNK
     Route: 065

REACTIONS (9)
  - Death [Fatal]
  - Respiratory failure [Unknown]
  - COVID-19 [Unknown]
  - Renal impairment [Unknown]
  - Lung consolidation [Unknown]
  - Lung infiltration [Unknown]
  - Cardiorenal syndrome [Unknown]
  - Epstein-Barr virus infection [Unknown]
  - Off label use [Unknown]

NARRATIVE: CASE EVENT DATE: 20210401
